FAERS Safety Report 7741553-5 (Version None)
Quarter: 2011Q3

REPORT INFORMATION
  Report Type: 
  Country: None (occurrence: None)
  Receive Date: 20110909
  Receipt Date: 20110831
  Transmission Date: 20111222
  Serious: Yes (Hospitalization)
  Sender: FDA-Public Use
  Company Number: US-ASTRAZENECA-2011SE52756

PATIENT
  Age: 70 Year
  Sex: Female

DRUGS (3)
  1. TOPROL-XL [Suspect]
     Route: 048
  2. SYMBICORT [Suspect]
     Route: 055
  3. CRESTOR [Suspect]
     Route: 048

REACTIONS (1)
  - MALAISE [None]
